FAERS Safety Report 8434656-3 (Version None)
Quarter: 2012Q2

REPORT INFORMATION
  Report Type: 
  Country: None (occurrence: None)
  Receive Date: 20120323
  Receipt Date: 20110607
  Transmission Date: 20120825
  Serious: Yes (Hospitalization)
  Sender: FDA-Public Use
  Company Number: 163-21880-11061154

PATIENT
  Age: 77 Year
  Sex: Female
  Weight: 65.318 kg

DRUGS (12)
  1. AMBIEN [Concomitant]
  2. FOLIC ACID [Concomitant]
  3. TOPROL-XL [Concomitant]
  4. REVLIMID [Suspect]
     Indication: MYELODYSPLASTIC SYNDROME
     Dosage: 5 MG, 1 IN 1 D, PO
     Route: 048
     Dates: start: 20110504, end: 20110513
  5. CALCIUM CARBONATE [Concomitant]
  6. BACTRIM [Concomitant]
  7. SIMVASTATIN [Concomitant]
  8. FOSAMAX [Concomitant]
  9. METFFORMIN HYDROCHLORIDE [Concomitant]
  10. VITAMIN D [Concomitant]
  11. WARFARIN SODIUM [Concomitant]
  12. PREDNISONE TAB [Concomitant]

REACTIONS (1)
  - CELLULITIS [None]
